FAERS Safety Report 5215661-7 (Version None)
Quarter: 2007Q1

REPORT INFORMATION
  Report Type: 
  Country: None (occurrence: None)
  Receive Date: 20070123
  Receipt Date: 20070109
  Transmission Date: 20070707
  Serious: Yes (Hospitalization)
  Sender: FDA-Public Use
  Company Number: TW-ELI_LILLY_AND_COMPANY-TW200701002667

PATIENT
  Age: 44 Year
  Sex: Female

DRUGS (3)
  1. OLANZAPINE [Suspect]
     Dosage: 5 MG, UNK
     Route: 048
  2. PREDNISOLONE [Concomitant]
     Dosage: 10 MG, UNK
  3. HYDROXYCHLOROQUINE SULFATE [Concomitant]
     Dosage: 400 MG, UNK

REACTIONS (1)
  - AGRANULOCYTOSIS [None]
